FAERS Safety Report 5619078-2 (Version None)
Quarter: 2008Q1

REPORT INFORMATION
  Report Type: 
  Country: None (occurrence: None)
  Receive Date: 20080207
  Receipt Date: 20080128
  Transmission Date: 20080703
  Serious: Yes (Death, Other)
  Sender: FDA-Public Use
  Company Number: US-PFIZER INC-2008008830

PATIENT
  Sex: Female
  Weight: 45 kg

DRUGS (13)
  1. CELEBREX [Suspect]
     Indication: RHEUMATOID ARTHRITIS
  2. PREDNISOLONE [Concomitant]
  3. LIDODERM [Concomitant]
  4. FENTANYL [Concomitant]
  5. OXYBUTYNIN CHLORIDE [Concomitant]
  6. ATENOLOL [Concomitant]
  7. METHOTREXATE [Concomitant]
  8. FOLIC ACID [Concomitant]
  9. CANASA [Concomitant]
  10. MIACALCIN [Concomitant]
  11. MIACALCIN [Concomitant]
  12. LEVOTHYROXINE SODIUM [Concomitant]
  13. NEXIUM [Concomitant]

REACTIONS (7)
  - ARTERIOSCLEROSIS [None]
  - CARDIAC ARREST [None]
  - CARDIAC FAILURE CONGESTIVE [None]
  - INTESTINAL FUNCTIONAL DISORDER [None]
  - MYOCARDIAL INFARCTION [None]
  - RENAL FAILURE [None]
  - WEIGHT DECREASED [None]
